FAERS Safety Report 5324346-8 (Version None)
Quarter: 2007Q2

REPORT INFORMATION
  Report Type: 
  Country: None (occurrence: None)
  Receive Date: 20070514
  Receipt Date: 20070504
  Transmission Date: 20071010
  Serious: Yes (Hospitalization)
  Sender: FDA-Public Use
  Company Number: BE-ABBOTT-07P-013-0355690-00

PATIENT
  Sex: Female

DRUGS (3)
  1. KALETRA [Suspect]
     Indication: HIV INFECTION
     Route: 048
     Dates: start: 20070103, end: 20070108
  2. VIREAD [Concomitant]
     Indication: HIV INFECTION
     Dates: start: 20070103
  3. EMTRIVA [Concomitant]
     Indication: HIV INFECTION
     Dates: start: 20070103

REACTIONS (7)
  - DIARRHOEA [None]
  - GASTROINTESTINAL DISORDER [None]
  - HOT FLUSH [None]
  - MALAISE [None]
  - PAIN IN EXTREMITY [None]
  - PARAESTHESIA [None]
  - POLYNEUROPATHY [None]
